FAERS Safety Report 6283110-6 (Version None)
Quarter: 2009Q3

REPORT INFORMATION
  Report Type: 
  Country: None (occurrence: None)
  Receive Date: 20090724
  Receipt Date: 20090714
  Transmission Date: 20100115
  Serious: Yes (Death, Hospitalization)
  Sender: FDA-Public Use
  Company Number: A0798302A

PATIENT
  Age: 42 Year
  Sex: Male

DRUGS (1)
  1. AVANDIA [Suspect]
     Dosage: 4MG PER DAY
     Route: 048
     Dates: start: 19991117, end: 20070503

REACTIONS (6)
  - CARDIAC FAILURE CONGESTIVE [None]
  - CARDIO-RESPIRATORY ARREST [None]
  - CARDIOMYOPATHY [None]
  - CORONARY ARTERY DISEASE [None]
  - HYPERLIPIDAEMIA [None]
  - MYOCARDIAL INFARCTION [None]
